FAERS Safety Report 5097823-5 (Version None)
Quarter: 2006Q3

REPORT INFORMATION
  Report Type: 
  Country: None (occurrence: None)
  Receive Date: 20060731
  Receipt Date: 20060414
  Transmission Date: 20061208
  Serious: No
  Sender: FDA-Public Use
  Company Number: 224127

PATIENT
  Age: 41 Year
  Sex: Female
  Weight: 74.4 kg

DRUGS (11)
  1. HERCEPTIN [Suspect]
     Indication: DRUG USE FOR UNKNOWN INDICATION
     Dosage: 452 MG, Q3W,    UNK,   INTRAVENOUS
     Route: 042
     Dates: start: 20050922, end: 20051208
  2. HERCEPTIN [Suspect]
     Indication: DRUG USE FOR UNKNOWN INDICATION
     Dosage: 452 MG, Q3W,    UNK,   INTRAVENOUS
     Route: 042
     Dates: start: 20060405
  3. . [Concomitant]
  4. PROGRAF [Concomitant]
  5. COUMADIN [Concomitant]
  6. ARIMIDEX [Concomitant]
  7. ZOLADEX [Concomitant]
  8. DEANOL BENZILATE [Concomitant]
  9. PREDNISONE TAB [Concomitant]
  10. AMBIEN [Concomitant]
  11. RITALIN [Concomitant]

REACTIONS (1)
  - BLOOD CREATININE INCREASED [None]
